FAERS Safety Report 23415872 (Version 1)
Quarter: 2024Q1

REPORT INFORMATION
  Report Type: Spontaneous
  Country: US (occurrence: US)
  Receive Date: 20240118
  Receipt Date: 20240118
  Transmission Date: 20240410
  Serious: Yes (Other)
  Sender: FDA-Public Use
  Company Number: US-JNJFOC-20240131657

PATIENT

DRUGS (1)
  1. IBUPROFEN [Suspect]
     Active Substance: IBUPROFEN
     Indication: Drug provocation test
     Route: 065

REACTIONS (5)
  - Off label use [Unknown]
  - Angioedema [Unknown]
  - Anaphylactic reaction [Unknown]
  - Urticaria [Unknown]
  - Drug hypersensitivity [Unknown]
